FAERS Safety Report 23719301 (Version 1)
Quarter: 2024Q2

REPORT INFORMATION
  Report Type: Spontaneous
  Country: FR (occurrence: FR)
  Receive Date: 20240408
  Receipt Date: 20240408
  Transmission Date: 20240716
  Serious: Yes (Life-Threatening, Hospitalization)
  Sender: FDA-Public Use
  Company Number: None

PATIENT
  Age: 53 Year
  Sex: Male
  Weight: 105 kg

DRUGS (6)
  1. ROCURONIUM BROMIDE [Suspect]
     Active Substance: ROCURONIUM BROMIDE
     Indication: Induction of anaesthesia
     Dosage: ROUTE OF ADMIN: INTRAVENOUS
     Dates: start: 20230527, end: 20230527
  2. PROPOFOL [Concomitant]
     Active Substance: PROPOFOL
     Indication: Induction of anaesthesia
     Dosage: ROA: INTRAVENOUS USE
     Dates: start: 20230527, end: 20230527
  3. SUFENTANIL [Concomitant]
     Active Substance: SUFENTANIL
     Indication: Induction of anaesthesia
     Dosage: ROA: INTRAVENOUS
     Dates: start: 20230527, end: 20230527
  4. BETADINE [Concomitant]
     Active Substance: POVIDONE-IODINE
     Indication: Prophylaxis
     Dosage: ROA: INTRAVENOUS
     Dates: start: 20230527, end: 20230527
  5. KETAMINE [Concomitant]
     Active Substance: KETAMINE
     Indication: Induction of anaesthesia
     Dosage: ROA: INTRAVENOUS USE
     Dates: start: 20230527, end: 20230527
  6. DEXAMETHASONE [Concomitant]
     Active Substance: DEXAMETHASONE
     Indication: Induction of anaesthesia
     Dosage: ROA: INTRAVENOUS USE
     Dates: start: 20230527, end: 20230527

REACTIONS (1)
  - Anaphylactic shock [Recovered/Resolved]

NARRATIVE: CASE EVENT DATE: 20230527
